FAERS Safety Report 6826462-8 (Version None)
Quarter: 2010Q3

REPORT INFORMATION
  Report Type: 
  Country: None (occurrence: None)
  Receive Date: 20100709
  Receipt Date: 20100701
  Transmission Date: 20110219
  Serious: Yes (Hospitalization)
  Sender: FDA-Public Use
  Company Number: US-SANOFI-AVENTIS-2010SA038364

PATIENT
  Age: 66 Year
  Sex: Male

DRUGS (2)
  1. GLIMEPIRIDE [Suspect]
     Indication: TYPE 2 DIABETES MELLITUS
     Route: 048
  2. PIOGLITAZONE [Suspect]
     Indication: TYPE 2 DIABETES MELLITUS
     Route: 048
     Dates: start: 20091217

REACTIONS (5)
  - FATIGUE [None]
  - NECK MASS [None]
  - THROAT TIGHTNESS [None]
  - THYROID ADENOMA [None]
  - UPPER RESPIRATORY TRACT CONGESTION [None]
